FAERS Safety Report 18731272 (Version 3)
Quarter: 2021Q2

REPORT INFORMATION
  Report Type: Spontaneous
  Country: US (occurrence: US)
  Receive Date: 20210112
  Receipt Date: 20210506
  Transmission Date: 20210717
  Serious: No
  Sender: FDA-Public Use
  Company Number: US-GLAXOSMITHKLINE-US2021AMR001421

PATIENT
  Sex: Female

DRUGS (6)
  1. VENTOLIN [Suspect]
     Active Substance: ALBUTEROL SULFATE
     Indication: COVID-19
  2. ALBUTEROL SULFATE. [Suspect]
     Active Substance: ALBUTEROL SULFATE
     Indication: ASTHMA
  3. VENTOLIN [Suspect]
     Active Substance: ALBUTEROL SULFATE
     Indication: LOWER RESPIRATORY TRACT INFECTION
     Dosage: UNK
     Route: 055
  4. ALBUTEROL SULFATE. [Suspect]
     Active Substance: ALBUTEROL SULFATE
     Indication: COVID-19
  5. VENTOLIN [Suspect]
     Active Substance: ALBUTEROL SULFATE
     Indication: ASTHMA
  6. ALBUTEROL SULFATE. [Suspect]
     Active Substance: ALBUTEROL SULFATE
     Indication: LOWER RESPIRATORY TRACT INFECTION
     Dosage: UNK, 18G/200 METERED
     Route: 055

REACTIONS (3)
  - Product use in unapproved indication [Unknown]
  - Incorrect dose administered [Unknown]
  - Product complaint [Unknown]
